FAERS Safety Report 10562486 (Version 1)
Quarter: 2014Q4

REPORT INFORMATION
  Report Type: Spontaneous
  Country: US (occurrence: None)
  Receive Date: 20141103
  Receipt Date: 20141103
  Transmission Date: 20150529
  Serious: Yes (Hospitalization)
  Sender: FDA-Public Use
  Company Number: None

PATIENT
  Age: 83 Year
  Sex: Male

DRUGS (1)
  1. IRBESARTAN. [Suspect]
     Active Substance: IRBESARTAN
     Indication: HYPERTENSION
     Dosage: MG
     Route: 048
     Dates: start: 20120507, end: 20130204

REACTIONS (8)
  - Anaphylactic reaction [None]
  - Eye swelling [None]
  - Swelling face [None]
  - Pruritus [None]
  - Angioedema [None]
  - Rash [None]
  - Hypersensitivity [None]
  - Lip swelling [None]

NARRATIVE: CASE EVENT DATE: 20130204
